FAERS Safety Report 23683218 (Version 1)
Quarter: 2024Q1

REPORT INFORMATION
  Report Type: Report from Study
  Country: US (occurrence: US)
  Receive Date: 20240328
  Receipt Date: 20240328
  Transmission Date: 20240410
  Serious: Yes (Other)
  Sender: FDA-Public Use
  Company Number: US-IMMUNOCORE, LTD-2024-IMC-002395

PATIENT
  Sex: Female

DRUGS (2)
  1. KIMMTRAK [Suspect]
     Active Substance: TEBENTAFUSP-TEBN
     Indication: Metastatic ocular melanoma
     Dosage: UNK, SINGLE, DOSE 8
  2. KIMMTRAK [Suspect]
     Active Substance: TEBENTAFUSP-TEBN
     Dosage: UNK, SINGLE, DOSE 16

REACTIONS (5)
  - Malignant neoplasm progression [Not Recovered/Not Resolved]
  - Emotional disorder [Not Recovered/Not Resolved]
  - Hepatic pain [Not Recovered/Not Resolved]
  - Vomiting [Not Recovered/Not Resolved]
  - Fatigue [Not Recovered/Not Resolved]
